FAERS Safety Report 20796508 (Version 5)
Quarter: 2022Q3

REPORT INFORMATION
  Report Type: Report from Study
  Country: US (occurrence: US)
  Receive Date: 20220506
  Receipt Date: 20220805
  Transmission Date: 20221027
  Serious: Yes (Hospitalization, Other)
  Sender: FDA-Public Use
  Company Number: US-BIOVITRUM-2022US05464

PATIENT
  Age: 63 Year
  Sex: Male

DRUGS (13)
  1. KINERET [Suspect]
     Active Substance: ANAKINRA
     Indication: Arthritis
     Dates: start: 20220420
  2. KINERET [Suspect]
     Active Substance: ANAKINRA
     Dates: start: 202204
  3. WARFARIN [Concomitant]
     Active Substance: WARFARIN
  4. PREDNISONE [Concomitant]
     Active Substance: PREDNISONE
  5. COLCHICINE [Concomitant]
     Active Substance: COLCHICINE
  6. FOLIC ACID [Concomitant]
     Active Substance: FOLIC ACID
  7. PANTOPRAZOLE [Concomitant]
     Active Substance: PANTOPRAZOLE
  8. KRYSTEXXA [Concomitant]
     Active Substance: PEGLOTICASE
  9. METFORMIN [Concomitant]
     Active Substance: METFORMIN HYDROCHLORIDE
  10. ROBAXIN [Concomitant]
     Active Substance: METHOCARBAMOL
  11. PERCOCET [Concomitant]
     Active Substance: ACETAMINOPHEN\OXYCODONE HYDROCHLORIDE
  12. FUROSEMIDE [Concomitant]
     Active Substance: FUROSEMIDE
  13. METHOTREXATE [Concomitant]
     Active Substance: METHOTREXATE

REACTIONS (18)
  - Thrombosis [Unknown]
  - Weight increased [Unknown]
  - Blood potassium decreased [Unknown]
  - Ventricular extrasystoles [Unknown]
  - Arrhythmia [Unknown]
  - Cardiac disorder [Unknown]
  - Blood glucose abnormal [Unknown]
  - Asthenia [Unknown]
  - Peripheral swelling [Unknown]
  - Dizziness [Unknown]
  - General physical health deterioration [Unknown]
  - Fluid retention [Unknown]
  - Rash macular [Unknown]
  - Fatigue [Unknown]
  - Musculoskeletal stiffness [Unknown]
  - Tenderness [Unknown]
  - Product dose omission issue [Unknown]
  - Off label use [Unknown]

NARRATIVE: CASE EVENT DATE: 20220401
